FAERS Safety Report 5321155-0 (Version None)
Quarter: 2007Q2

REPORT INFORMATION
  Report Type: 
  Country: None (occurrence: None)
  Receive Date: 20070507
  Receipt Date: 20070507
  Transmission Date: 20071010
  Serious: No
  Sender: FDA-Public Use
  Company Number: None

PATIENT
  Age: 56 Year
  Sex: Male
  Weight: 77.1115 kg

DRUGS (1)
  1. NAPROXEN [Suspect]
     Indication: MUSCLE RELAXANT THERAPY
     Dates: start: 20070505, end: 20070506

REACTIONS (1)
  - STOMACH DISCOMFORT [None]
